FAERS Safety Report 16507221 (Version 2)
Quarter: 2019Q3

REPORT INFORMATION
  Report Type: Report from Study
  Country: US (occurrence: US)
  Receive Date: 20190701
  Receipt Date: 20190724
  Transmission Date: 20191004
  Serious: Yes (Hospitalization, Other)
  Sender: FDA-Public Use
  Company Number: US-ACTELION-A-US2018-175324

PATIENT
  Age: 77 Year
  Sex: Female

DRUGS (1)
  1. OPSUMIT [Suspect]
     Active Substance: MACITENTAN
     Indication: PULMONARY ARTERIAL HYPERTENSION
     Dosage: 10 MG, QD
     Route: 048
     Dates: start: 20180516

REACTIONS (15)
  - Nerve compression [Unknown]
  - Cataract [Unknown]
  - Sciatica [Unknown]
  - Diabetes mellitus [Unknown]
  - Oxygen saturation decreased [Recovered/Resolved]
  - Fluid retention [Not Recovered/Not Resolved]
  - Diabetic neuropathy [Unknown]
  - Pain [Unknown]
  - Nuclear magnetic resonance imaging [Unknown]
  - Musculoskeletal discomfort [Unknown]
  - Nerve injury [Unknown]
  - Cellulitis [Unknown]
  - Malaise [Unknown]
  - Product dose omission [Recovered/Resolved]
  - Dyspnoea [Recovered/Resolved]

NARRATIVE: CASE EVENT DATE: 20180629
